FAERS Safety Report 7142816-7 (Version None)
Quarter: 2010Q4

REPORT INFORMATION
  Report Type: 
  Country: None (occurrence: None)
  Receive Date: 20101207
  Receipt Date: 20100810
  Transmission Date: 20110411
  Serious: Yes (Death, Congenital Anomaly, Other)
  Sender: FDA-Public Use
  Company Number: US-ABBOTT-10P-163-0656800-00

PATIENT

DRUGS (8)
  1. RITONAVIR [Suspect]
     Indication: DRUG EXPOSURE DURING PREGNANCY
     Dosage: 200MG DAILY
     Route: 064
  2. KALETRA [Suspect]
     Indication: DRUG EXPOSURE DURING PREGNANCY
     Dosage: 4 TABLETS DAILY
     Route: 064
     Dates: start: 20100324, end: 20100513
  3. DARUNAVIR [Suspect]
     Indication: DRUG EXPOSURE DURING PREGNANCY
     Dosage: 1200MG DAILY
     Route: 064
     Dates: start: 20090101, end: 20091201
  4. DARUNAVIR [Suspect]
     Dosage: 1200MG DAILY
     Route: 048
     Dates: start: 20100514
  5. EMTRICITABINE [Suspect]
     Indication: DRUG EXPOSURE DURING PREGNANCY
     Dosage: 200MG DAILY
     Route: 064
     Dates: end: 20100323
  6. RALTEGRAVIR [Suspect]
     Indication: DRUG EXPOSURE DURING PREGNANCY
     Dosage: 800MG DAILY
     Route: 064
     Dates: end: 20100323
  7. TENOFOVIR DISOPROXIL FUMARATE [Suspect]
     Indication: DRUG EXPOSURE DURING PREGNANCY
     Dosage: 300MG DAILY
     Route: 064
     Dates: start: 20100324, end: 20100513
  8. LAMIVUDINE + ZIDOVUDINE [Suspect]
     Indication: DRUG EXPOSURE DURING PREGNANCY
     Dosage: 2 DOSAGE FORMS DAILY
     Route: 064
     Dates: start: 20100514

REACTIONS (3)
  - INTRA-UTERINE DEATH [None]
  - STILLBIRTH [None]
  - TRISOMY 21 [None]
